FAERS Safety Report 13173635 (Version 1)
Quarter: 2017Q1

REPORT INFORMATION
  Report Type: Spontaneous
  Country: US (occurrence: US)
  Receive Date: 20170131
  Receipt Date: 20170131
  Transmission Date: 20170428
  Serious: Yes (Other)
  Sender: FDA-Public Use
  Company Number: US-ABBVIE-16K-163-1640231-00

PATIENT

DRUGS (2)
  1. HUMIRA [Suspect]
     Active Substance: ADALIMUMAB
     Indication: PSORIATIC ARTHROPATHY
  2. HUMIRA [Suspect]
     Active Substance: ADALIMUMAB
     Indication: RHEUMATOID ARTHRITIS
     Route: 058

REACTIONS (8)
  - Activities of daily living impaired [Unknown]
  - Asthenia [Unknown]
  - Knee arthroplasty [Unknown]
  - Crohn^s disease [Unknown]
  - Fibromyalgia [Unknown]
  - Impaired work ability [Unknown]
  - Costochondritis [Unknown]
  - Auditory disorder [Unknown]
